FAERS Safety Report 18039133 (Version 1)
Quarter: 2020Q3

REPORT INFORMATION
  Report Type: Spontaneous
  Country: US (occurrence: US)
  Receive Date: 20200717
  Receipt Date: 20200717
  Transmission Date: 20201103
  Serious: No
  Sender: FDA-Public Use
  Company Number: US-INTRA-CELLULAR THERAPIES, INC.-2020ICT00033

PATIENT
  Age: 43 Year
  Sex: Female
  Weight: 65.76 kg

DRUGS (1)
  1. CAPLYTA [Suspect]
     Active Substance: LUMATEPERONE
     Indication: SCHIZOPHRENIA
     Dosage: 42 MG, 1X/DAY
     Dates: start: 202005, end: 20200611

REACTIONS (6)
  - Distractibility [Recovered/Resolved]
  - Malaise [Recovered/Resolved]
  - Sedation [Recovered/Resolved]
  - Tremor [Recovered/Resolved]
  - Dysgraphia [Recovered/Resolved]
  - Gait disturbance [Recovered/Resolved]

NARRATIVE: CASE EVENT DATE: 2020
